FAERS Safety Report 8333454-9 (Version None)
Quarter: 2012Q1

REPORT INFORMATION
  Report Type: 
  Country: None (occurrence: None)
  Receive Date: 20120329
  Receipt Date: 20100517
  Transmission Date: 20120608
  Serious: Yes (Hospitalization)
  Sender: FDA-Public Use
  Company Number: PHHY2010US31917

PATIENT
  Age: 72 Year
  Sex: Male
  Weight: 72.6 kg

DRUGS (4)
  1. SEROQUEL [Concomitant]
  2. NAMENDA [Concomitant]
  3. NEURONTIN [Concomitant]
  4. EXELON [Suspect]
     Dosage: 1.5 MG, BID, ORAL
     Route: 048
     Dates: start: 20100505, end: 20100512

REACTIONS (1)
  - LOSS OF CONSCIOUSNESS [None]
